FAERS Safety Report 25144625 (Version 1)
Quarter: 2025Q2

REPORT INFORMATION
  Report Type: Spontaneous
  Country: GB (occurrence: GB)
  Receive Date: 20250401
  Receipt Date: 20250401
  Transmission Date: 20250717
  Serious: Yes (Death, Other)
  Sender: GENMAB
  Company Number: GB-ABBVIE-6203408

PATIENT
  Sex: Male

DRUGS (1)
  1. EPCORITAMAB [Suspect]
     Active Substance: EPCORITAMAB
     Indication: Product used for unknown indication
     Route: 058

REACTIONS (4)
  - Disease progression [Fatal]
  - Bacterial infection [Fatal]
  - Diffuse large B-cell lymphoma [Not Recovered/Not Resolved]
  - Respiratory disorder [Not Recovered/Not Resolved]
